FAERS Safety Report 5451004-1 (Version None)
Quarter: 2007Q3

REPORT INFORMATION
  Report Type: 
  Country: None (occurrence: None)
  Receive Date: 20070911
  Receipt Date: 20070815
  Transmission Date: 20080115
  Serious: Yes (Other)
  Sender: FDA-Public Use
  Company Number: 6037243

PATIENT
  Age: 47 Year
  Sex: Male

DRUGS (4)
  1. CIPROFLOXACIN [Suspect]
     Indication: SKIN INFECTION
     Dosage: 1000 MG (500 MG,2 IN 1 D), 500 MG
  2. CLOZAPINE [Suspect]
     Indication: SCHIZOPHRENIA, PARANOID TYPE
     Dosage: 750  MG (750 MG,1 IN 1 D), 700 MG
  3. AMISULPRIDE (AMISULPRIDE) [Concomitant]
  4. LORAZEPAM [Concomitant]

REACTIONS (2)
  - ANTIPSYCHOTIC DRUG LEVEL ABOVE THERAPEUTIC [None]
  - DRUG INTERACTION [None]
